FAERS Safety Report 14846596 (Version 3)
Quarter: 2018Q2

REPORT INFORMATION
  Report Type: Report from Study
  Country: ZA (occurrence: ZA)
  Receive Date: 20180504
  Receipt Date: 20180613
  Transmission Date: 20180711
  Serious: Yes (Life-Threatening, Hospitalization)
  Sender: FDA-Public Use
  Company Number: ZA-IPSEN BIOPHARMACEUTICALS, INC.-2018-06498

PATIENT
  Age: 51 Year
  Sex: Male

DRUGS (3)
  1. ASTHAVENT [Concomitant]
     Active Substance: ALBUTEROL SULFATE
  2. SYMBICORT [Concomitant]
     Active Substance: BUDESONIDE\FORMOTEROL FUMARATE DIHYDRATE
  3. LANREOTIDE ACETATE [Suspect]
     Active Substance: LANREOTIDE ACETATE
     Indication: PRODUCT USED FOR UNKNOWN INDICATION
     Dosage: 90 MG
     Route: 058
     Dates: start: 20171229

REACTIONS (5)
  - Postoperative renal failure [Recovered/Resolved]
  - Peptic ulcer perforation [Recovered/Resolved]
  - Post procedural sepsis [Recovered/Resolved]
  - Diarrhoea [Recovered/Resolved]
  - Lower respiratory tract infection [Recovered/Resolved]

NARRATIVE: CASE EVENT DATE: 2018
